FAERS Safety Report 19652530 (Version 3)
Quarter: 2021Q3

REPORT INFORMATION
  Report Type: Spontaneous
  Country: US (occurrence: US)
  Receive Date: 20210803
  Receipt Date: 20210914
  Transmission Date: 20211014
  Serious: Yes (Other)
  Sender: FDA-Public Use
  Company Number: US-SA-2021SA252159

PATIENT
  Age: 34 Year
  Sex: Female

DRUGS (6)
  1. ALBUTEROL SULFATE. [Concomitant]
     Active Substance: ALBUTEROL SULFATE
  2. CYMBALTA [Concomitant]
     Active Substance: DULOXETINE HYDROCHLORIDE
  3. DUPIXENT [Suspect]
     Active Substance: DUPILUMAB
     Indication: ASTHMA
     Dosage: 300 MG, QOW
     Route: 058
  4. ADVAIR HFA [Concomitant]
     Active Substance: FLUTICASONE PROPIONATE\SALMETEROL XINAFOATE
     Dosage: DISKU AEP 500?50MC
  5. BUSPIRONE [Concomitant]
     Active Substance: BUSPIRONE HYDROCHLORIDE
  6. SPIRIVA [Concomitant]
     Active Substance: TIOTROPIUM BROMIDE MONOHYDRATE
     Dosage: UNK

REACTIONS (6)
  - COVID-19 [Unknown]
  - Bronchitis [Unknown]
  - Dizziness [Unknown]
  - Product storage error [Unknown]
  - Product use issue [Unknown]
  - Seizure [Unknown]

NARRATIVE: CASE EVENT DATE: 20210720
